FAERS Safety Report 9835214 (Version 2)
Quarter: 2014Q2

REPORT INFORMATION
  Report Type: Spontaneous
  Country: US (occurrence: US)
  Receive Date: 20140122
  Receipt Date: 20140424
  Transmission Date: 20141212
  Serious: Yes (Other)
  Sender: FDA-Public Use
  Company Number: US-BRISTOL-MYERS SQUIBB COMPANY-19864495

PATIENT
  Age: 68 Year
  Sex: Male
  Weight: 126.98 kg

DRUGS (2)
  1. ELIQUIS [Suspect]
     Indication: CEREBROVASCULAR ACCIDENT PROPHYLAXIS
     Dosage: RESTARTED ELIQUIS AT 2.5MG,24OCT13-26NOV13
     Route: 048
     Dates: start: 20131024
  2. ELIQUIS [Suspect]
     Indication: ATRIAL FLUTTER
     Dosage: RESTARTED ELIQUIS AT 2.5MG,24OCT13-26NOV13
     Route: 048
     Dates: start: 20131024

REACTIONS (1)
  - Rectal haemorrhage [Unknown]
